FAERS Safety Report 7273399-9 (Version None)
Quarter: 2011Q1

REPORT INFORMATION
  Report Type: 
  Country: None (occurrence: None)
  Receive Date: 20110203
  Receipt Date: 20100806
  Transmission Date: 20110831
  Serious: No
  Sender: FDA-Public Use
  Company Number: US-ABBOTT-10P-163-0663135-00

PATIENT
  Age: 46 Year
  Sex: Male
  Weight: 91.254 kg

DRUGS (2)
  1. SYNTHROID [Suspect]
     Indication: HYPOTHYROIDISM
     Dates: start: 20100730
  2. SYNTHROID [Suspect]
     Dates: start: 20100715, end: 20100729

REACTIONS (1)
  - DYSPEPSIA [None]
